FAERS Safety Report 6917041-2 (Version None)
Quarter: 2010Q3

REPORT INFORMATION
  Report Type: 
  Country: None (occurrence: None)
  Receive Date: 20100810
  Receipt Date: 20100804
  Transmission Date: 20110219
  Serious: Yes (Death)
  Sender: FDA-Public Use
  Company Number: A0874017A

PATIENT
  Age: 35 Year
  Sex: Male
  Weight: 100 kg

DRUGS (3)
  1. PAROXETINE [Suspect]
     Indication: MIGRAINE
     Dosage: 30MG UNKNOWN
     Route: 048
     Dates: start: 20100331
  2. BENADRYL [Concomitant]
  3. ALCOHOL [Concomitant]

REACTIONS (2)
  - ALCOHOL USE [None]
  - ROAD TRAFFIC ACCIDENT [None]
